FAERS Safety Report 9782729 (Version 1)
Quarter: 2013Q4

REPORT INFORMATION
  Report Type: Spontaneous
  Country: None (occurrence: None)
  Receive Date: 20131224
  Receipt Date: 20131224
  Transmission Date: 20140711
  Serious: Yes (Life-Threatening)
  Sender: FDA-Public Use
  Company Number: None

PATIENT
  Age: 40 Year
  Sex: Male
  Weight: 89 kg

DRUGS (1)
  1. GLYCOMET [Suspect]
     Dosage: 2 PILLS
     Route: 048
     Dates: start: 20131201, end: 20131218

REACTIONS (4)
  - Medication residue present [None]
  - Product solubility abnormal [None]
  - Product substitution issue [None]
  - Product quality issue [None]
